FAERS Safety Report 17019668 (Version 1)
Quarter: 2019Q4

REPORT INFORMATION
  Report Type: Spontaneous
  Country: GB (occurrence: GB)
  Receive Date: 20191112
  Receipt Date: 20191112
  Transmission Date: 20200122
  Serious: Yes (Other)
  Sender: FDA-Public Use
  Company Number: GB-COLGATE PALMOLIVE COMPANY-20191102762

PATIENT

DRUGS (2)
  1. COL TOTAL PRO GUM HEALTH TOOTHPASTE [Suspect]
     Active Substance: SODIUM FLUORIDE\TRICLOSAN
     Indication: DENTAL CARE
     Dosage: PEA SIZE AMOUNT
     Route: 061
     Dates: start: 20180129, end: 20180129
  2. LEVOTHYROXINE. [Concomitant]
     Active Substance: LEVOTHYROXINE

REACTIONS (8)
  - Throat irritation [Recovered/Resolved]
  - Pruritus [Recovered/Resolved]
  - Swelling face [Recovered/Resolved with Sequelae]
  - Dyspnoea [Recovered/Resolved]
  - Oral pain [Recovered/Resolved with Sequelae]
  - Paraesthesia oral [Recovered/Resolved]
  - Oral discomfort [Recovered/Resolved with Sequelae]
  - Stomatitis [Recovered/Resolved with Sequelae]

NARRATIVE: CASE EVENT DATE: 20180129
